FAERS Safety Report 8511739-0 (Version None)
Quarter: 2012Q3

REPORT INFORMATION
  Report Type: 
  Country: None (occurrence: None)
  Receive Date: 20120716
  Receipt Date: 20120705
  Transmission Date: 20120928
  Serious: Yes (Other)
  Sender: FDA-Public Use
  Company Number: US-VERTEX PHARMACEUTICALS INC.-AE-2012-008618

PATIENT
  Sex: Male

DRUGS (9)
  1. PEGINTERFERON ALFA-2A [Concomitant]
     Indication: HEPATITIS C
     Route: 058
     Dates: start: 20120222
  2. LISINOPRIL [Concomitant]
  3. MULTI-VITAMINS [Concomitant]
  4. ONGLYZA [Concomitant]
  5. RIBAVIRIN [Concomitant]
     Dates: start: 20120530
  6. INCIVEK [Suspect]
     Indication: HEPATITIS C
     Route: 048
     Dates: start: 20120222, end: 20120502
  7. RIBAVIRIN [Concomitant]
     Indication: HEPATITIS C
     Dates: start: 20120222, end: 20120502
  8. RIBAVIRIN [Concomitant]
     Dates: start: 20120502, end: 20120530
  9. GABAPENTIN [Concomitant]

REACTIONS (3)
  - PRURITUS [None]
  - INTERSTITIAL LUNG DISEASE [None]
  - RASH GENERALISED [None]
